FAERS Safety Report 17251782 (Version 1)
Quarter: 2020Q1

REPORT INFORMATION
  Report Type: Spontaneous
  Country: GB (occurrence: GB)
  Receive Date: 20200109
  Receipt Date: 20200109
  Transmission Date: 20200409
  Serious: Yes (Disabling, Other)
  Sender: FDA-Public Use
  Company Number: GB-TEVA-2020-GB-1164631

PATIENT
  Age: 83 Year
  Sex: Female

DRUGS (22)
  1. SPIRONOLACTONE. [Concomitant]
     Active Substance: SPIRONOLACTONE
  2. FUROSEMIDE. [Concomitant]
     Active Substance: FUROSEMIDE
  3. DICLOFENAC [Concomitant]
     Active Substance: DICLOFENAC
     Dosage: NOW STOPPED
  4. FERROUS FUMARATE [Concomitant]
     Active Substance: FERROUS FUMARATE
  5. CALIFIG CALIFORNIA SYRUP OF FIGS [Concomitant]
  6. RAMIPRIL. [Concomitant]
     Active Substance: RAMIPRIL
  7. LACTULOSE. [Concomitant]
     Active Substance: LACTULOSE
  8. PROCHLORPERAZINE. [Concomitant]
     Active Substance: PROCHLORPERAZINE
  9. BISOPROLOL [Concomitant]
     Active Substance: BISOPROLOL
  10. MIRABEGRON [Concomitant]
     Active Substance: MIRABEGRON
  11. OMEPRAZOLE. [Concomitant]
     Active Substance: OMEPRAZOLE
  12. ACETAMINOPHEN AND CODEINE [Concomitant]
     Active Substance: ACETAMINOPHEN\CODEINE PHOSPHATE
  13. ORAMORPH [Concomitant]
     Active Substance: MORPHINE SULFATE
  14. CYCLIZINE [Concomitant]
     Active Substance: CYCLIZINE
  15. WARFARIN [Suspect]
     Active Substance: WARFARIN
     Dates: end: 20190401
  16. NITROFURANTOIN. [Concomitant]
     Active Substance: NITROFURANTOIN
  17. RIVAROXABAN [Suspect]
     Active Substance: RIVAROXABAN
     Indication: ATRIAL FIBRILLATION
     Dosage: 15 MG
     Route: 048
     Dates: start: 20190401, end: 20191204
  18. PREGABALIN. [Concomitant]
     Active Substance: PREGABALIN
  19. AMITRIPTYLINE [Concomitant]
     Active Substance: AMITRIPTYLINE
  20. LEVOTHYROXINE. [Concomitant]
     Active Substance: LEVOTHYROXINE
  21. PARACETAMOL [Concomitant]
     Active Substance: ACETAMINOPHEN
  22. ZOMORPH [Concomitant]
     Active Substance: MORPHINE SULFATE

REACTIONS (3)
  - Haemarthrosis [Recovering/Resolving]
  - Ecchymosis [Unknown]
  - Contusion [Unknown]

NARRATIVE: CASE EVENT DATE: 20191204
